FAERS Safety Report 4432515-4 (Version None)
Quarter: 2004Q3

REPORT INFORMATION
  Report Type: 
  Country: None (occurrence: None)
  Receive Date: 20040818
  Receipt Date: 20040805
  Transmission Date: 20050211
  Serious: Yes (Death)
  Sender: FDA-Public Use
  Company Number: 04-NIP00098

PATIENT
  Age: 22 Year
  Sex: Male

DRUGS (17)
  1. NIPENT [Suspect]
     Indication: HODGKIN'S DISEASE
     Dosage: 4 MG/M2 QD, INTRAVENOUS
     Route: 042
     Dates: start: 20040206
  2. ACYCLOVIR [Concomitant]
  3. VORICONAZOLE [Concomitant]
  4. PRILOSEC (OMEPRAZOLE SA) [Concomitant]
  5. FOLIC ACID [Concomitant]
  6. URSODIOL [Concomitant]
  7. PREDNISONE TAPER (PREDNISONE) [Concomitant]
  8. BACTRIM DS (SULFAMETHOXAZOLE/TRIMETHO) [Concomitant]
  9. AMBIEN [Concomitant]
  10. NAPROSYN [Concomitant]
  11. ATIVAN [Concomitant]
  12. DIPHENHYDRAMINE HCL [Concomitant]
  13. DEXTROSE [Concomitant]
  14. OXYGEN [Concomitant]
  15. AZTREONAM [Concomitant]
  16. FLAGYL [Concomitant]
  17. EUCERIN (EUCERIN CREAM) [Concomitant]

REACTIONS (33)
  - ASCITES [None]
  - BLOOD BILIRUBIN INCREASED [None]
  - BLOOD CREATININE INCREASED [None]
  - BLOOD GLUCOSE DECREASED [None]
  - BLOOD GLUCOSE INCREASED [None]
  - BLOOD UREA INCREASED [None]
  - CHOLESTASIS [None]
  - CONDITION AGGRAVATED [None]
  - DIALYSIS [None]
  - DIFFUSE ALVEOLAR DAMAGE [None]
  - DISEASE PROGRESSION [None]
  - GALLBLADDER DISORDER [None]
  - HAEMORRHAGE [None]
  - HEPATOMEGALY [None]
  - HODGKIN'S DISEASE [None]
  - LYMPHADENOPATHY [None]
  - MENTAL STATUS CHANGES [None]
  - METABOLIC ACIDOSIS [None]
  - MULTI-ORGAN FAILURE [None]
  - NAUSEA [None]
  - OBLITERATIVE BRONCHIOLITIS [None]
  - PNEUMONIA [None]
  - POST PROCEDURAL COMPLICATION [None]
  - PULMONARY ALVEOLAR HAEMORRHAGE [None]
  - PULMONARY OEDEMA [None]
  - RASH ERYTHEMATOUS [None]
  - RASH PRURITIC [None]
  - RESPIRATORY DISTRESS [None]
  - SEPSIS SYNDROME [None]
  - SPLENOMEGALY [None]
  - ULTRASOUND LIVER ABNORMAL [None]
  - VENOOCCLUSIVE DISEASE [None]
  - VOMITING [None]
